FAERS Safety Report 12898996 (Version 3)
Quarter: 2016Q4

REPORT INFORMATION
  Report Type: Report from Study
  Country: US (occurrence: US)
  Receive Date: 20161101
  Receipt Date: 20161207
  Transmission Date: 20170207
  Serious: Yes (Hospitalization)
  Sender: FDA-Public Use
  Company Number: US-ROCHE-1848562

PATIENT
  Age: 64 Year
  Sex: Male
  Weight: 82.8 kg

DRUGS (21)
  1. LOVAZA [Concomitant]
     Active Substance: OMEGA-3-ACID ETHYL ESTERS
     Indication: HYPERLIPIDAEMIA
     Route: 048
  2. ASTELIN (UNITED STATES) [Concomitant]
     Indication: NASAL POLYPS
     Route: 045
     Dates: start: 20150514
  3. KAYEXALATE [Concomitant]
     Active Substance: SODIUM POLYSTYRENE SULFONATE
     Indication: BLOOD POTASSIUM INCREASED
     Route: 048
     Dates: start: 20151015
  4. AMLODIPINE [Concomitant]
     Active Substance: AMLODIPINE BESYLATE
     Indication: HYPERTENSION
     Route: 048
  5. CLOBETASOL [Concomitant]
     Active Substance: CLOBETASOL
     Indication: SKIN INFECTION
     Route: 061
     Dates: start: 20150316
  6. KAYEXALATE [Concomitant]
     Active Substance: SODIUM POLYSTYRENE SULFONATE
     Route: 054
     Dates: start: 20151015
  7. ATEZOLIZUMAB [Suspect]
     Active Substance: ATEZOLIZUMAB
     Indication: CLEAR CELL RENAL CELL CARCINOMA
     Dosage: THE MOST RECENT DOSE OF ATEZOLIZUMAB PRIOR TO THE ONSET OF EDEMA AND FATIGUE WAS 15/SEP/2016.
     Route: 042
     Dates: start: 20140612
  8. CRESTOR [Concomitant]
     Active Substance: ROSUVASTATIN CALCIUM
     Indication: BLOOD CHOLESTEROL
     Route: 048
  9. LABETALOL [Concomitant]
     Active Substance: LABETALOL\LABETALOL HYDROCHLORIDE
     Indication: HYPERTENSION
     Route: 048
     Dates: start: 20150827
  10. BEVACIZUMAB [Suspect]
     Active Substance: BEVACIZUMAB
     Indication: CLEAR CELL RENAL CELL CARCINOMA
     Dosage: THE MOST RECENT DOSE OF BEVACIZUMAB PRIOR TO THE ONSET OF EDEMA WAS 1200 MG ON 15/SEP/2016.
     Route: 042
     Dates: start: 20150604
  11. PREDNISONE. [Suspect]
     Active Substance: PREDNISONE
     Indication: CHRONIC KIDNEY DISEASE
  12. OMEPRAZOLE. [Concomitant]
     Active Substance: OMEPRAZOLE
     Indication: GASTROOESOPHAGEAL REFLUX DISEASE
     Route: 048
  13. TYLENOL [Concomitant]
     Active Substance: ACETAMINOPHEN
     Indication: PAIN
     Route: 048
     Dates: start: 20140612
  14. LEVITRA [Concomitant]
     Active Substance: VARDENAFIL HYDROCHLORIDE TRIHYDRATE
     Indication: RAYNAUD^S PHENOMENON
     Route: 048
  15. VITAMIN D3 [Concomitant]
     Active Substance: CHOLECALCIFEROL
     Indication: SUPPLEMENTATION THERAPY
     Route: 048
     Dates: start: 20140819
  16. CLONIDINE. [Concomitant]
     Active Substance: CLONIDINE
     Indication: HYPERTENSION
     Route: 048
     Dates: start: 20150924
  17. PREDNISONE. [Suspect]
     Active Substance: PREDNISONE
     Indication: NEPHRITIS
     Route: 048
     Dates: start: 20160919
  18. PREDNISONE. [Suspect]
     Active Substance: PREDNISONE
     Indication: ACUTE KIDNEY INJURY
  19. FLONASE (UNITED STATES) [Concomitant]
     Indication: NASAL POLYPS
     Route: 055
  20. SYNTHROID [Concomitant]
     Active Substance: LEVOTHYROXINE SODIUM
     Indication: HYPOTHYROIDISM
     Route: 048
     Dates: start: 20150827
  21. CALCITRIOL. [Concomitant]
     Active Substance: CALCITRIOL
     Indication: SUPPLEMENTATION THERAPY
     Route: 048
     Dates: start: 20150330

REACTIONS (2)
  - Oedema [Recovered/Resolved]
  - Fatigue [Recovered/Resolved]

NARRATIVE: CASE EVENT DATE: 20161027
